FAERS Safety Report 17072682 (Version 6)
Quarter: 2021Q3

REPORT INFORMATION
  Report Type: Spontaneous
  Country: US (occurrence: US)
  Receive Date: 20191125
  Receipt Date: 20210923
  Transmission Date: 20211014
  Serious: Yes (Other)
  Sender: FDA-Public Use
  Company Number: US-PFIZER INC-2019506304

PATIENT
  Age: 69 Year
  Sex: Female

DRUGS (2)
  1. SUTENT [Suspect]
     Active Substance: SUNITINIB MALATE
     Indication: NEUROENDOCRINE CARCINOMA
     Dosage: 37.5 MG, DAILY (37.5MG ONE CAPSULE DAILY BY MOUTH)
     Route: 048
  2. LEVOTHYROXINE SODIUM. [Concomitant]
     Active Substance: LEVOTHYROXINE SODIUM
     Indication: THYROID DISORDER
     Dosage: 50 UG (MICROGRAMS)

REACTIONS (5)
  - Product storage error [Unknown]
  - Alopecia [Not Recovered/Not Resolved]
  - Poor quality product administered [Unknown]
  - Immunodeficiency [Unknown]
  - Neoplasm progression [Unknown]
